FAERS Safety Report 6583170-9 (Version None)
Quarter: 2010Q1

REPORT INFORMATION
  Report Type: 
  Country: None (occurrence: None)
  Receive Date: 20100216
  Receipt Date: 20100208
  Transmission Date: 20100710
  Serious: Yes (Life-Threatening)
  Sender: FDA-Public Use
  Company Number: IN-ROCHE-684747

PATIENT
  Sex: Female

DRUGS (1)
  1. AVASTIN [Suspect]
     Indication: METASTATIC RENAL CELL CARCINOMA
     Dosage: RECEIVED 2 DOSES
     Route: 065

REACTIONS (1)
  - CARDIAC ARREST [None]
